FAERS Safety Report 12743838 (Version 11)
Quarter: 2020Q4

REPORT INFORMATION
  Report Type: Spontaneous
  Country: US (occurrence: US)
  Receive Date: 20160914
  Receipt Date: 20201012
  Transmission Date: 20210113
  Serious: Yes (Hospitalization, Other)
  Sender: FDA-Public Use
  Company Number: US-PFIZER INC-2016427575

PATIENT
  Age: 82 Year
  Sex: Female
  Weight: 97 kg

DRUGS (8)
  1. LYRICA [Suspect]
     Active Substance: PREGABALIN
     Indication: POST HERPETIC NEURALGIA
     Dosage: 75 MG, 3X/DAY
     Route: 048
  2. HYDROCODONE BITARTRATE AND ACETAMINOPHEN [Concomitant]
     Active Substance: ACETAMINOPHEN\HYDROCODONE BITARTRATE
     Dosage: UNK (7.5)
  3. LYRICA [Suspect]
     Active Substance: PREGABALIN
     Indication: ARTHRALGIA
  4. LYRICA [Suspect]
     Active Substance: PREGABALIN
     Indication: PAIN IN EXTREMITY
  5. LORTAB [Concomitant]
     Active Substance: ACETAMINOPHEN\HYDROCODONE BITARTRATE
     Indication: BREAST PAIN
     Dosage: UNK, 3X/DAY (HYDROCODONE 7.5, 325 TABLET)
  6. LYRICA [Suspect]
     Active Substance: PREGABALIN
     Indication: PAIN
  7. LYRICA [Suspect]
     Active Substance: PREGABALIN
     Indication: BREAST PAIN
  8. LORTAB [Concomitant]
     Active Substance: ACETAMINOPHEN\HYDROCODONE BITARTRATE
     Dosage: UNK (HIGHER DOSE OF 10.325)

REACTIONS (20)
  - Memory impairment [Unknown]
  - Herpes zoster [Not Recovered/Not Resolved]
  - Pain in extremity [Unknown]
  - Dyspnoea [Not Recovered/Not Resolved]
  - Kidney infection [Unknown]
  - Visual impairment [Unknown]
  - Disease recurrence [Not Recovered/Not Resolved]
  - Influenza [Not Recovered/Not Resolved]
  - Nausea [Unknown]
  - Upper respiratory tract congestion [Unknown]
  - Body height decreased [Unknown]
  - Fall [Unknown]
  - Weight decreased [Unknown]
  - Gait disturbance [Unknown]
  - Respiratory disorder [Unknown]
  - Hypertension [Unknown]
  - Rhinorrhoea [Not Recovered/Not Resolved]
  - Cough [Unknown]
  - Malaise [Recovering/Resolving]
  - Arthralgia [Unknown]

NARRATIVE: CASE EVENT DATE: 20160909
